FAERS Safety Report 7033762-8 (Version None)
Quarter: 2010Q4

REPORT INFORMATION
  Report Type: 
  Country: None (occurrence: None)
  Receive Date: 20101007
  Receipt Date: 20100927
  Transmission Date: 20110411
  Serious: Yes (Hospitalization)
  Sender: FDA-Public Use
  Company Number: PHHO2010US10766

PATIENT
  Sex: Male

DRUGS (8)
  1. LBH589 LBH+CAP [Suspect]
     Indication: NEOPLASM
     Dosage: 10 MG 3 TIMES A WEEK
     Route: 048
     Dates: start: 20100304
  2. AFINITOR [Suspect]
     Indication: NEOPLASM
     Dosage: 10 MG / DAY
     Route: 048
  3. AVASTIN [Suspect]
     Indication: NEOPLASM
     Dosage: 10 MG/KG / 14 DAYS
     Route: 042
     Dates: start: 20100304
  4. OXYCODONE [Suspect]
  5. OXYCONTIN [Suspect]
  6. CHEMOTHERAPEUTICS NOS [Suspect]
  7. ASPIRIN [Concomitant]
  8. LOVENOX [Concomitant]

REACTIONS (9)
  - ABDOMINAL PAIN [None]
  - BLOOD CREATININE INCREASED [None]
  - CHOLELITHIASIS [None]
  - GASTROINTESTINAL TUBE INSERTION [None]
  - HYPERBILIRUBINAEMIA [None]
  - IMPAIRED GASTRIC EMPTYING [None]
  - NAUSEA [None]
  - THROMBOCYTOPENIA [None]
  - VOMITING [None]
